FAERS Safety Report 20442128 (Version 1)
Quarter: 2022Q1

REPORT INFORMATION
  Report Type: Report from Study
  Country: US (occurrence: US)
  Receive Date: 20220208
  Receipt Date: 20220208
  Transmission Date: 20220423
  Serious: Yes (Other)
  Sender: FDA-Public Use
  Company Number: US-UCBSA-2022004581

PATIENT
  Age: 26 Year
  Sex: Female

DRUGS (1)
  1. CERTOLIZUMAB PEGOL [Suspect]
     Active Substance: CERTOLIZUMAB PEGOL
     Indication: Psoriasis
     Dosage: 400 MILLIGRAM, EV 2 WEEKS(QOW)
     Dates: start: 20220126, end: 20220126

REACTIONS (7)
  - Ocular hyperaemia [Recovering/Resolving]
  - Migraine [Recovering/Resolving]
  - Pharyngeal mass [Recovering/Resolving]
  - Limb mass [Recovering/Resolving]
  - Chest pain [Recovering/Resolving]
  - Neck mass [Recovering/Resolving]
  - Injection site mass [Recovering/Resolving]

NARRATIVE: CASE EVENT DATE: 20220126
